FAERS Safety Report 9709723 (Version 1)
Quarter: 2013Q4

REPORT INFORMATION
  Report Type: Spontaneous
  Country: FR (occurrence: FR)
  Receive Date: 20131126
  Receipt Date: 20131126
  Transmission Date: 20140711
  Serious: Yes (Hospitalization)
  Sender: FDA-Public Use
  Company Number: FR-JNJFOC-20131112683

PATIENT
  Age: 87 Year
  Sex: Female

DRUGS (9)
  1. XARELTO [Suspect]
     Indication: ARRHYTHMIA
     Route: 048
     Dates: start: 20130720, end: 20130910
  2. DICLOFENAC [Suspect]
     Indication: PRODUCT USED FOR UNKNOWN INDICATION
     Route: 003
     Dates: start: 20130416, end: 20130910
  3. PIASCLEDINE [Suspect]
     Indication: OSTEOARTHRITIS
     Route: 048
     Dates: start: 20130416, end: 20130910
  4. DOLIPRANE [Suspect]
     Indication: PAIN
     Route: 048
     Dates: start: 20130416
  5. HYPERIUM [Suspect]
     Indication: HYPERTENSION
     Route: 065
     Dates: start: 20130416
  6. CORDARONE [Suspect]
     Indication: PRODUCT USED FOR UNKNOWN INDICATION
     Route: 048
     Dates: start: 20130416
  7. PRAVASTATIN SODIUM [Suspect]
     Indication: PROPHYLAXIS
     Route: 048
     Dates: start: 20130416
  8. EXELON [Suspect]
     Indication: COGNITIVE DISORDER
     Route: 048
     Dates: start: 20130416
  9. COVERAM [Concomitant]
     Indication: PRODUCT USED FOR UNKNOWN INDICATION
     Route: 048
     Dates: start: 20130416, end: 20130510

REACTIONS (3)
  - Hypersensitivity vasculitis [Recovering/Resolving]
  - Purpura [Recovered/Resolved]
  - Rash [Recovering/Resolving]
